FAERS Safety Report 5042371-1 (Version None)
Quarter: 2006Q2

REPORT INFORMATION
  Report Type: 
  Country: None (occurrence: None)
  Receive Date: 20060627
  Receipt Date: 20060613
  Transmission Date: 20061013
  Serious: Yes (Life-Threatening)
  Sender: FDA-Public Use
  Company Number: 2006-114

PATIENT
  Age: 58 Year
  Sex: Female

DRUGS (2)
  1. CITALOPRAM [Suspect]
     Indication: DEPRESSION
     Dosage: 10MG DAILY ORALLY
     Route: 048
     Dates: start: 20060127, end: 20060401
  2. ZOPICLONE [Concomitant]

REACTIONS (1)
  - SUICIDAL IDEATION [None]
